FAERS Safety Report 4538090-8 (Version None)
Quarter: 2004Q4

REPORT INFORMATION
  Report Type: 
  Country: None (occurrence: None)
  Receive Date: 20041223
  Receipt Date: 20041223
  Transmission Date: 20050328
  Serious: Yes (Hospitalization)
  Sender: FDA-Public Use
  Company Number: None

PATIENT
  Age: 51 Year
  Sex: Male

DRUGS (1)
  1. PARLODEL [Suspect]
     Indication: HYPERPROLACTINAEMIA
     Dosage: 2.5MG  PO BID
     Route: 048

REACTIONS (4)
  - ANXIETY [None]
  - BLOOD PRESSURE INCREASED [None]
  - DIZZINESS [None]
  - HYPERHIDROSIS [None]
